FAERS Safety Report 6604186-X (Version None)
Quarter: 2010Q1

REPORT INFORMATION
  Report Type: 
  Country: None (occurrence: None)
  Receive Date: 20100226
  Receipt Date: 20090624
  Transmission Date: 20100710
  Serious: No
  Sender: FDA-Public Use
  Company Number: A0793507A

PATIENT
  Age: 36 Year
  Sex: Female

DRUGS (2)
  1. LAMOTRIGINE [Suspect]
     Indication: BIPOLAR DISORDER
     Dosage: 100MG PER DAY
     Route: 048
     Dates: end: 20090620
  2. ZOLOFT [Concomitant]

REACTIONS (4)
  - GLOSSODYNIA [None]
  - PRURITUS [None]
  - SKIN BURNING SENSATION [None]
  - THROAT IRRITATION [None]
